FAERS Safety Report 7559692-0 (Version None)
Quarter: 2011Q2

REPORT INFORMATION
  Report Type: 
  Country: None (occurrence: None)
  Receive Date: 20110621
  Receipt Date: 20110608
  Transmission Date: 20111010
  Serious: No
  Sender: FDA-Public Use
  Company Number: FR-ELI_LILLY_AND_COMPANY-FR201104004089

PATIENT
  Age: 35 Year
  Sex: Female
  Weight: 83 kg

DRUGS (6)
  1. VICTAN [Concomitant]
     Indication: ANXIETY
     Dosage: 5 MG, QD
     Route: 048
     Dates: start: 20110215
  2. TRIHEXYPHENIDYL HYDROCHLORIDE [Concomitant]
     Indication: AFFECTIVE DISORDER
     Dosage: 5 MG, QD
     Route: 048
     Dates: start: 20110311
  3. CYMBALTA [Suspect]
     Indication: DEPRESSION
     Dosage: 60 MG, QD
     Route: 048
     Dates: start: 20090324
  4. TEGRETOL [Concomitant]
     Indication: AFFECTIVE DISORDER
     Dosage: 400 MG, QD
     Route: 048
     Dates: start: 20110208
  5. LOXAPINE HCL [Concomitant]
     Indication: AFFECTIVE DISORDER
     Dosage: 20 GTT, QD
     Route: 048
     Dates: start: 20110214, end: 20110405
  6. RISPERDAL [Concomitant]
     Dosage: UNK

REACTIONS (2)
  - ALANINE AMINOTRANSFERASE INCREASED [None]
  - GAMMA-GLUTAMYLTRANSFERASE INCREASED [None]
